FAERS Safety Report 19132579 (Version 5)
Quarter: 2022Q1

REPORT INFORMATION
  Report Type: Report from Study
  Country: BR (occurrence: BR)
  Receive Date: 20210414
  Receipt Date: 20220301
  Transmission Date: 20220423
  Serious: Yes (Death, Hospitalization, Other)
  Sender: FDA-Public Use
  Company Number: NVSC2020BR294696

PATIENT
  Sex: Female

DRUGS (4)
  1. COSENTYX [Interacting]
     Active Substance: SECUKINUMAB
     Indication: Ankylosing spondylitis
     Dosage: 150 MG
     Route: 065
     Dates: start: 20190227
  2. COSENTYX [Interacting]
     Active Substance: SECUKINUMAB
     Dosage: UNK
     Route: 065
     Dates: start: 20200902
  3. COSENTYX [Interacting]
     Active Substance: SECUKINUMAB
     Dosage: UNK
     Route: 065
  4. COSENTYX [Interacting]
     Active Substance: SECUKINUMAB
     Dosage: UNK
     Route: 065
     Dates: end: 202111

REACTIONS (14)
  - Death [Fatal]
  - Urinary tract infection [Recovered/Resolved]
  - COVID-19 [Recovered/Resolved]
  - Urinary tract infection [Unknown]
  - Dementia Alzheimer^s type [Not Recovered/Not Resolved]
  - Respiratory disorder [Unknown]
  - Palpitations [Unknown]
  - Illness [Unknown]
  - Chest pain [Unknown]
  - Drug interaction [Unknown]
  - Influenza [Recovering/Resolving]
  - Cough [Recovering/Resolving]
  - Rhinitis [Recovering/Resolving]
  - Cardiac disorder [Unknown]

NARRATIVE: CASE EVENT DATE: 20200101
